FAERS Safety Report 7319039-1 (Version None)
Quarter: 2011Q1

REPORT INFORMATION
  Report Type: 
  Country: None (occurrence: None)
  Receive Date: 20110228
  Receipt Date: 20110228
  Transmission Date: 20110831
  Serious: Yes (Hospitalization)
  Sender: FDA-Public Use
  Company Number: CA-ELI_LILLY_AND_COMPANY-CA201008002683

PATIENT
  Sex: Female
  Weight: 57.5 kg

DRUGS (10)
  1. SENOKOT [Concomitant]
     Dosage: 2 D/F, 2/D
     Route: 048
     Dates: start: 20100622
  2. BLISTEX [Concomitant]
     Dosage: UNK, AS NEEDED
     Route: 061
     Dates: start: 20100709
  3. CISPLATIN [Suspect]
     Dosage: 87.36 MG, OTHER
     Route: 042
     Dates: start: 20100629
  4. NECITUMUMAB (11F8) (LY3012211) [Suspect]
     Dosage: 600 MG, OTHER
     Route: 042
     Dates: start: 20100629
  5. POLYSPORIN [Concomitant]
     Dosage: UNK, 3/D
     Route: 061
     Dates: start: 20100709
  6. PEMETREXED [Suspect]
     Dosage: 585 MG, OTHER
     Route: 042
     Dates: start: 20100629
  7. METOCLOPRAMIDE HCL [Concomitant]
     Dosage: 10 MG, 2/D
     Route: 048
     Dates: start: 20100719, end: 20100802
  8. EMPRACET WITH CODEINE [Concomitant]
     Dosage: 1 D/F, EVERY 4 HRS
     Route: 048
     Dates: start: 20100615
  9. FOLIC ACID [Concomitant]
     Dosage: 400 UG, DAILY (1/D)
     Route: 048
     Dates: start: 20100622
  10. PROCHLORPERAZINE [Concomitant]
     Dosage: 10 MG, EVERY 4 HRS
     Route: 048
     Dates: start: 20100718

REACTIONS (12)
  - DIARRHOEA [None]
  - LYMPHOCYTE PERCENTAGE INCREASED [None]
  - VOMITING [None]
  - GAMMA-GLUTAMYLTRANSFERASE INCREASED [None]
  - NEUTROPHIL COUNT DECREASED [None]
  - BLOOD MAGNESIUM DECREASED [None]
  - RED BLOOD CELL COUNT DECREASED [None]
  - WHITE BLOOD CELL COUNT DECREASED [None]
  - BLOOD CHLORIDE DECREASED [None]
  - ALANINE AMINOTRANSFERASE INCREASED [None]
  - NAUSEA [None]
  - MALAISE [None]
